FAERS Safety Report 4556824-3 (Version None)
Quarter: 2005Q1

REPORT INFORMATION
  Report Type: 
  Country: None (occurrence: None)
  Receive Date: 20050120
  Receipt Date: 20050105
  Transmission Date: 20050727
  Serious: Yes (Hospitalization)
  Sender: FDA-Public Use
  Company Number: BE-JNJFOC-20050101408

PATIENT
  Age: 43 Year
  Sex: Female

DRUGS (1)
  1. PROPULSID [Suspect]
     Indication: DIABETIC GASTROPARESIS
     Route: 049
     Dates: start: 20030404

REACTIONS (2)
  - BLOOD GLUCOSE FLUCTUATION [None]
  - REFLUX OESOPHAGITIS [None]
